FAERS Safety Report 5302499-5 (Version None)
Quarter: 2007Q2

REPORT INFORMATION
  Report Type: 
  Country: None (occurrence: None)
  Receive Date: 20070419
  Receipt Date: 20070412
  Transmission Date: 20071010
  Serious: Yes (Hospitalization)
  Sender: FDA-Public Use
  Company Number: US-ELI_LILLY_AND_COMPANY-US200704002787

PATIENT
  Age: 62 Year
  Sex: Female

DRUGS (5)
  1. HUMALOG [Suspect]
     Dosage: UNK, UNKNOWN
     Dates: start: 20030101
  2. INSULIN [Concomitant]
     Indication: DIABETES MELLITUS
     Dosage: UNK, UNKNOWN
  3. NEXIUM [Concomitant]
     Dosage: UNK, UNKNOWN
  4. LACTULOSE [Concomitant]
     Indication: DYSPEPSIA
     Dosage: UNK, UNKNOWN
  5. GLUCOTROL [Concomitant]
     Dosage: UNK, UNKNOWN

REACTIONS (2)
  - LIVER DISORDER [None]
  - TRANSIENT ISCHAEMIC ATTACK [None]
